FAERS Safety Report 13740576 (Version 5)
Quarter: 2018Q1

REPORT INFORMATION
  Report Type: Report from Study
  Country: DE (occurrence: DE)
  Receive Date: 20170711
  Receipt Date: 20180116
  Transmission Date: 20180508
  Serious: Yes (Hospitalization, Disabling)
  Sender: FDA-Public Use
  Company Number: DE-ROCHE-1872210

PATIENT
  Age: 74 Year
  Sex: Female
  Weight: 65 kg

DRUGS (21)
  1. FENISTIL (GERMANY) [Concomitant]
     Route: 065
     Dates: start: 20161207, end: 20161207
  2. APREPITANT. [Concomitant]
     Active Substance: APREPITANT
     Route: 065
     Dates: start: 20161130, end: 20161130
  3. APREPITANT. [Concomitant]
     Active Substance: APREPITANT
     Route: 065
     Dates: start: 20161221, end: 20161221
  4. RANITIC [Concomitant]
     Active Substance: RANITIDINE HYDROCHLORIDE
     Route: 065
     Dates: start: 20161130, end: 20161130
  5. DEXAMETHASON [Concomitant]
     Active Substance: DEXAMETHASONE
     Route: 065
     Dates: start: 20161207, end: 20161207
  6. ATEZOLIZUMAB. [Suspect]
     Active Substance: ATEZOLIZUMAB
     Indication: NON-SMALL CELL LUNG CANCER STAGE IV
     Dosage: MOST RECENT DOSE OF ATEZOLIZUMAB ON 21/DEC/2016 AT 11:30 (1200MG)?ON DAY 1 OF EACH 21 DAY CYCLE
     Route: 042
     Dates: start: 20161109
  7. NAB-PACLITAXEL [Suspect]
     Active Substance: PACLITAXEL
     Indication: NON-SMALL CELL LUNG CANCER STAGE IV
     Dosage: MOST RECENT DOSE  OF  PACLITAXEL ALBUMIN 167 MG 21/DEC/2016 AT 12:00?ON DAYS 1, 8, AND 15 OF EACH 21
     Route: 042
     Dates: start: 20161109
  8. CARBOPLATIN. [Suspect]
     Active Substance: CARBOPLATIN
     Indication: NON-SMALL CELL LUNG CANCER STAGE IV
     Dosage: AREA UNDER THE CONCENTRATION-TIME CURVE (AUC) OF 6 MG/ML/MIN ON DAY 1 OF EACH 21 DAY CYCLE (PER PROT
     Route: 042
     Dates: start: 20161109
  9. ENALAPRIL [Concomitant]
     Active Substance: ENALAPRIL
     Indication: PROPHYLAXIS
     Route: 065
     Dates: start: 20161109
  10. RANITIC [Concomitant]
     Active Substance: RANITIDINE HYDROCHLORIDE
     Route: 065
     Dates: start: 20161207, end: 20161207
  11. METOPROLOL. [Concomitant]
     Active Substance: METOPROLOL
     Indication: PROPHYLAXIS
     Route: 065
     Dates: start: 20161108
  12. SIMVASTIN [Concomitant]
     Active Substance: SIMVASTATIN
     Route: 065
     Dates: start: 20161109
  13. RANITIC [Concomitant]
     Active Substance: RANITIDINE HYDROCHLORIDE
     Route: 065
     Dates: start: 20161123, end: 20161123
  14. FENISTIL (GERMANY) [Concomitant]
     Route: 065
     Dates: start: 20161130, end: 20161130
  15. IS 5 MONO-RATIOPHARM [Concomitant]
     Indication: PROPHYLAXIS
     Route: 065
     Dates: start: 20161109
  16. FENISTIL (GERMANY) [Concomitant]
     Route: 065
     Dates: start: 20161221, end: 20161221
  17. DEXAMETHASON [Concomitant]
     Active Substance: DEXAMETHASONE
     Route: 065
     Dates: start: 20161130, end: 20161130
  18. FENISTIL (GERMANY) [Concomitant]
     Route: 065
     Dates: start: 20161123, end: 20161123
  19. RANITIC [Concomitant]
     Active Substance: RANITIDINE HYDROCHLORIDE
     Route: 065
     Dates: start: 20161221, end: 20161221
  20. GRANISETRON [Concomitant]
     Active Substance: GRANISETRON
     Route: 065
     Dates: start: 20161130, end: 20161130
  21. ZOFRAN [Concomitant]
     Active Substance: ONDANSETRON HYDROCHLORIDE
     Indication: PROPHYLAXIS
     Route: 065
     Dates: start: 20161108

REACTIONS (2)
  - Ataxia [Recovered/Resolved]
  - Urinary tract infection [Recovered/Resolved]

NARRATIVE: CASE EVENT DATE: 20161222
